FAERS Safety Report 23132980 (Version 2)
Quarter: 2024Q1

REPORT INFORMATION
  Report Type: Spontaneous
  Country: PL (occurrence: PL)
  Receive Date: 20231101
  Receipt Date: 20240313
  Transmission Date: 20240410
  Serious: Yes (Hospitalization, Other)
  Sender: FDA-Public Use
  Company Number: PL-AMGEN-POLSP2023182639

PATIENT
  Age: 73 Year
  Sex: Female

DRUGS (6)
  1. IRINOTECAN [Suspect]
     Active Substance: IRINOTECAN
     Indication: Colorectal cancer metastatic
     Dosage: UNK
     Route: 065
     Dates: start: 20211122, end: 2022
  2. IRINOTECAN [Suspect]
     Active Substance: IRINOTECAN
     Dosage: UNK
     Route: 065
     Dates: end: 20230607
  3. VECTIBIX [Suspect]
     Active Substance: PANITUMUMAB
     Indication: Colorectal cancer metastatic
     Dosage: UNK
     Route: 065
     Dates: start: 20211122
  4. VECTIBIX [Suspect]
     Active Substance: PANITUMUMAB
     Dosage: UNK, DOSE REDUCTION
     Route: 065
     Dates: start: 20230131
  5. FLUOROURACIL [Concomitant]
     Active Substance: FLUOROURACIL
     Indication: Colorectal cancer metastatic
     Dosage: UNK
     Route: 065
     Dates: start: 20211122
  6. LEUCOVORIN [Concomitant]
     Active Substance: LEUCOVORIN\LEUCOVORIN CALCIUM
     Indication: Colorectal cancer metastatic
     Dosage: UNK
     Route: 065
     Dates: start: 20211122

REACTIONS (18)
  - Hypomagnesaemia [Unknown]
  - Colorectal cancer metastatic [Unknown]
  - Myelosuppression [Unknown]
  - Neutropenia [Unknown]
  - Hair texture abnormal [Unknown]
  - Asthenia [Unknown]
  - Urinary tract infection [Unknown]
  - Diarrhoea [Unknown]
  - Skin fissures [Unknown]
  - Urticaria [Unknown]
  - Fatigue [Unknown]
  - Skin lesion [Unknown]
  - Nausea [Unknown]
  - Dry skin [Unknown]
  - Corneal lesion [Unknown]
  - Vomiting [Unknown]
  - Alopecia [Unknown]
  - Blepharitis [Unknown]

NARRATIVE: CASE EVENT DATE: 20221214
